FAERS Safety Report 9227845 (Version 1)
Quarter: 2013Q2

REPORT INFORMATION
  Report Type: Spontaneous
  Country: US (occurrence: None)
  Receive Date: 20130410
  Receipt Date: 20130410
  Transmission Date: 20140414
  Serious: Yes (Other)
  Sender: FDA-Public Use
  Company Number: 2013/078

PATIENT
  Age: 55 Year
  Sex: Male

DRUGS (6)
  1. AMLODIPINE [Suspect]
     Indication: HYPERTENSION
     Route: 048
     Dates: end: 20120711
  2. SIMVASTATINE [Suspect]
     Indication: BLOOD CHOLESTEROL INCREASED
     Route: 048
     Dates: start: 20110613, end: 20120925
  3. RAMIPRIL [Suspect]
     Indication: HYPERTENSION
     Route: 048
     Dates: end: 20120711
  4. PRAVASTATINE [Suspect]
     Dates: end: 20121206
  5. LERCANIDIPINE [Suspect]
     Indication: BLOOD PRESSURE
     Route: 048
  6. LOSARTAN [Suspect]
     Indication: BLOOD PRESSURE
     Route: 048

REACTIONS (6)
  - Confusional state [None]
  - Fatigue [None]
  - Dyspnoea [None]
  - Myalgia [None]
  - Throat irritation [None]
  - Drug interaction [None]
